FAERS Safety Report 12697085 (Version 1)
Quarter: 2016Q3

REPORT INFORMATION
  Report Type: Spontaneous
  Country: US (occurrence: US)
  Receive Date: 20160830
  Receipt Date: 20160830
  Transmission Date: 20161109
  Serious: No
  Sender: FDA-Public Use
  Company Number: US-VERTEX PHARMACEUTICALS-2016-004940

PATIENT
  Sex: Female

DRUGS (4)
  1. AQUADEKS [Concomitant]
     Active Substance: MINERALS\VITAMINS
  2. ORKAMBI [Suspect]
     Active Substance: IVACAFTOR\LUMACAFTOR
     Indication: CYSTIC FIBROSIS
     Dosage: 200MG/125MG, BID
     Route: 048
     Dates: start: 20150815, end: 201608
  3. ACETYLCYSTEINE. [Concomitant]
     Active Substance: ACETYLCYSTEINE
  4. ANTIBIOTICS [Interacting]
     Active Substance: UNSPECIFIED INGREDIENT
     Indication: BACTERIAL INFECTION
     Route: 065

REACTIONS (2)
  - Bacterial infection [Unknown]
  - Drug interaction [Unknown]
